FAERS Safety Report 8085605 (Version 2)
Quarter: 2014Q1

REPORT INFORMATION
  Report Type: Spontaneous
  Country: US (occurrence: US)
  Receive Date: 20110811
  Receipt Date: 20140228
  Transmission Date: 20141002
  Serious: Yes (Hospitalization)
  Sender: FDA-Public Use
  Company Number: US-RANBAXY-2011US-46577

PATIENT
  Age: 36 Year
  Sex: Female

DRUGS (1)
  1. PARACETAMOL/ACETAMINOPHEN [Suspect]
     Indication: PRODUCT USED FOR UNKNOWN INDICATION
     Dosage: UNK
     Route: 048

REACTIONS (5)
  - Overdose [Unknown]
  - Acute hepatic failure [Recovering/Resolving]
  - Brain oedema [Recovering/Resolving]
  - Multi-organ failure [Unknown]
  - Intraventricular haemorrhage [Recovering/Resolving]
